FAERS Safety Report 22589327 (Version 1)
Quarter: 2023Q2

REPORT INFORMATION
  Report Type: Spontaneous
  Country: US (occurrence: None)
  Receive Date: 20230609
  Receipt Date: 20230609
  Transmission Date: 20230721
  Serious: Yes (Hospitalization)
  Sender: FDA-Public Use
  Company Number: None

PATIENT
  Sex: Male
  Weight: 83.9 kg

DRUGS (1)
  1. CISPLATIN [Suspect]
     Active Substance: CISPLATIN

REACTIONS (11)
  - Dysphagia [None]
  - Radiation skin injury [None]
  - Dehydration [None]
  - Decreased appetite [None]
  - Anaemia [None]
  - Nausea [None]
  - Neutrophil count decreased [None]
  - Embolism [None]
  - Vomiting [None]
  - Lymphocyte count decreased [None]
  - White blood cell count decreased [None]

NARRATIVE: CASE EVENT DATE: 20230514
